FAERS Safety Report 5582021-9 (Version None)
Quarter: 2007Q4

REPORT INFORMATION
  Report Type: 
  Country: None (occurrence: None)
  Receive Date: 20071130
  Receipt Date: 20070622
  Transmission Date: 20080405
  Serious: No
  Sender: FDA-Public Use
  Company Number: US200705004561

PATIENT
  Age: 67 Year
  Sex: Female

DRUGS (7)
  1. BYETTA [Suspect]
     Indication: TYPE 2 DIABETES MELLITUS
     Dosage: 5 UG, 2/D, SUBCUTANEOUS ; 10 UG, 2/D, SUBCUTANEOUS
     Route: 058
     Dates: start: 20050101, end: 20070301
  2. BYETTA [Suspect]
     Indication: TYPE 2 DIABETES MELLITUS
     Dosage: 5 UG, 2/D, SUBCUTANEOUS ; 10 UG, 2/D, SUBCUTANEOUS
     Route: 058
     Dates: start: 20070301
  3. METFORMIN HCL [Concomitant]
  4. PRANDIN (DEFLAZACORT) [Concomitant]
  5. ALBUTEROL [Concomitant]
  6. INTAL [Concomitant]
  7. AZMACORT [Concomitant]

REACTIONS (9)
  - ABDOMINAL PAIN [None]
  - BLOOD GLUCOSE ABNORMAL [None]
  - CONSTIPATION [None]
  - DECREASED APPETITE [None]
  - DIARRHOEA [None]
  - DIZZINESS [None]
  - FEELING JITTERY [None]
  - PRURITUS [None]
  - REGURGITATION [None]
